FAERS Safety Report 11025045 (Version 1)
Quarter: 2015Q2

REPORT INFORMATION
  Report Type: Spontaneous
  Country: JP (occurrence: JP)
  Receive Date: 20150414
  Receipt Date: 20150414
  Transmission Date: 20150821
  Serious: Yes (Hospitalization, Other)
  Sender: FDA-Public Use
  Company Number: JP-SUN PHARMACEUTICAL INDUSTRIES LTD-2015RR-95363

PATIENT
  Age: 41 Year
  Sex: Female

DRUGS (5)
  1. LAPATINIB [Concomitant]
     Active Substance: LAPATINIB
     Indication: CHEMOTHERAPY
  2. CAPECITABINE. [Suspect]
     Active Substance: CAPECITABINE
     Indication: CHEMOTHERAPY
     Dosage: 2400 MG, DAILY (3 WEEKS ON AN 1 WEEK OFF)
     Route: 065
  3. PHENYTOIN. [Interacting]
     Active Substance: PHENYTOIN
     Indication: SEIZURE
     Dosage: 200 MG, DAILY
     Route: 048
  4. CAPECITABINE. [Interacting]
     Active Substance: CAPECITABINE
     Indication: BREAST CANCER
  5. LAPATINIB [Concomitant]
     Active Substance: LAPATINIB
     Indication: BREAST CANCER
     Dosage: 1250 MG, DAILY
     Route: 065

REACTIONS (2)
  - Toxicity to various agents [Unknown]
  - Drug interaction [Unknown]
